FAERS Safety Report 11081987 (Version 3)
Quarter: 2015Q2

REPORT INFORMATION
  Report Type: Report from Study
  Country: IT (occurrence: None)
  Receive Date: 20150429
  Receipt Date: 20150610
  Transmission Date: 20150821
  Serious: Yes (Hospitalization)
  Sender: FDA-Public Use
  Company Number: 2015SGN00632

PATIENT
  Age: 25 Year
  Sex: Male
  Weight: 83.5 kg

DRUGS (9)
  1. BRENTUXIMAB VEDOTIN [Suspect]
     Active Substance: BRENTUXIMAB VEDOTIN
     Indication: HODGKIN^S DISEASE
     Route: 042
     Dates: start: 20150408, end: 20150408
  2. PREDNISONE (PREDNISONE) [Concomitant]
     Active Substance: PREDNISONE
  3. DOXORUBICIN [Suspect]
     Active Substance: DOXORUBICIN
     Indication: HODGKIN^S DISEASE
     Route: 042
     Dates: start: 20150408, end: 20150408
  4. VINBLASTINE [Suspect]
     Active Substance: VINBLASTINE
     Indication: HODGKIN^S DISEASE
     Route: 042
     Dates: start: 20150408, end: 20150408
  5. PANTOPRAZOL (PANTOPRAZOLE SODIUM SESQUIHYDRATE) [Concomitant]
     Active Substance: PANTOPRAZOLE SODIUM
  6. PALONOSETRON (PALONOSETRON) [Concomitant]
  7. DEXAMETHASONE. [Concomitant]
     Active Substance: DEXAMETHASONE
  8. DACARBAZINE. [Suspect]
     Active Substance: DACARBAZINE
     Indication: HODGKIN^S DISEASE
     Route: 042
     Dates: start: 20150408, end: 20150408
  9. ALLOPURINOL (ALLOPURINOL) [Concomitant]
     Active Substance: ALLOPURINOL

REACTIONS (17)
  - Abdominal pain [None]
  - Amylase increased [None]
  - Hypotension [None]
  - Blood bilirubin increased [None]
  - Haematocrit decreased [None]
  - Faecaloma [None]
  - Fibrin D dimer increased [None]
  - Diarrhoea [None]
  - Blood potassium decreased [None]
  - Red blood cell count decreased [None]
  - Dizziness [None]
  - Fatigue [None]
  - Vomiting [None]
  - Alanine aminotransferase increased [None]
  - Aspartate aminotransferase increased [None]
  - Haemoglobin decreased [None]
  - White blood cell count increased [None]

NARRATIVE: CASE EVENT DATE: 20150410
